FAERS Safety Report 10238243 (Version 1)
Quarter: 2014Q2

REPORT INFORMATION
  Report Type: Spontaneous
  Country: US (occurrence: US)
  Receive Date: 20140616
  Receipt Date: 20140616
  Transmission Date: 20141212
  Serious: No
  Sender: FDA-Public Use
  Company Number: US-PFIZER INC-2014163315

PATIENT
  Age: 65 Year
  Sex: Male
  Weight: 86.17 kg

DRUGS (3)
  1. LIPITOR [Suspect]
     Indication: BLOOD CHOLESTEROL ABNORMAL
     Dosage: 10 MG, DAILY
  2. LIPITOR [Suspect]
     Dosage: 80 MG, DAILY
     Dates: start: 201405, end: 2014
  3. LIPITOR [Suspect]
     Dosage: 10 MG, DAILY
     Dates: start: 20140609

REACTIONS (2)
  - Nausea [Recovered/Resolved]
  - Malaise [Recovered/Resolved]
